FAERS Safety Report 14724318 (Version 1)
Quarter: 2018Q2

REPORT INFORMATION
  Report Type: Spontaneous
  Country: US (occurrence: US)
  Receive Date: 20180405
  Receipt Date: 20180405
  Transmission Date: 20180711
  Serious: No
  Sender: FDA-Public Use
  Company Number: US-ROCHE-2073853

PATIENT
  Sex: Male

DRUGS (7)
  1. HCTZ [Concomitant]
     Active Substance: HYDROCHLOROTHIAZIDE
  2. COTELLIC [Suspect]
     Active Substance: COBIMETINIB
     Indication: METASTASIS
     Route: 048
     Dates: start: 20180112
  3. ZELBORAF [Suspect]
     Active Substance: VEMURAFENIB
     Indication: METASTASIS
     Route: 048
     Dates: start: 20180112
  4. ATORVASTATIN CALCIUM. [Concomitant]
     Active Substance: ATORVASTATIN CALCIUM
  5. VITAMIN C [Concomitant]
     Active Substance: ASCORBIC ACID
  6. TAMSULOSIN HCL [Concomitant]
     Active Substance: TAMSULOSIN HYDROCHLORIDE
  7. LOSARTAN POTASSIUM. [Concomitant]
     Active Substance: LOSARTAN POTASSIUM

REACTIONS (2)
  - Nausea [Unknown]
  - Pyrexia [Unknown]
